FAERS Safety Report 13932639 (Version 1)
Quarter: 2017Q3

REPORT INFORMATION
  Report Type: Report from Study
  Country: PH (occurrence: PH)
  Receive Date: 20170904
  Receipt Date: 20170904
  Transmission Date: 20171127
  Serious: Yes (Death, Hospitalization)
  Sender: FDA-Public Use
  Company Number: PH-ASTRAZENECA-2017SE89115

PATIENT
  Age: 66 Year
  Sex: Female

DRUGS (1)
  1. FASLODEX [Suspect]
     Active Substance: FULVESTRANT
     Indication: HORMONE THERAPY
     Dosage: 500.0MG UNKNOWN
     Route: 030
     Dates: end: 20170630

REACTIONS (2)
  - Pleural effusion [Fatal]
  - Hepatomegaly [Fatal]

NARRATIVE: CASE EVENT DATE: 20170710
